FAERS Safety Report 10753693 (Version 20)
Quarter: 2017Q3

REPORT INFORMATION
  Report Type: Report from Study
  Country: CA (occurrence: CA)
  Receive Date: 20150201
  Receipt Date: 20170718
  Transmission Date: 20171127
  Serious: Yes (Other)
  Sender: FDA-Public Use
  Company Number: PHHY2015CA007187

PATIENT
  Age: 70 Year
  Sex: Female

DRUGS (8)
  1. TASIGNA [Suspect]
     Active Substance: NILOTINIB
     Indication: CHRONIC MYELOID LEUKAEMIA
     Dosage: 300 MG, BID
     Route: 048
     Dates: start: 20150114
  2. TASIGNA [Suspect]
     Active Substance: NILOTINIB
     Dosage: 300 MG, QD
     Route: 048
  3. CLONAZEPAM. [Concomitant]
     Active Substance: CLONAZEPAM
     Indication: BLOOD CHOLESTEROL ABNORMAL
     Route: 065
  4. IRON [Concomitant]
     Active Substance: IRON
     Indication: PRODUCT USED FOR UNKNOWN INDICATION
     Route: 065
  5. COVERSYL [Concomitant]
     Active Substance: PERINDOPRIL
     Indication: BLOOD PRESSURE INCREASED
     Route: 065
  6. TASIGNA [Suspect]
     Active Substance: NILOTINIB
     Dosage: 300 MG, BID
     Route: 048
  7. CLONAZEPAM. [Concomitant]
     Active Substance: CLONAZEPAM
     Indication: BLOOD PRESSURE ABNORMAL
  8. ROSUVASTATIN. [Concomitant]
     Active Substance: ROSUVASTATIN
     Indication: PRODUCT USED FOR UNKNOWN INDICATION
     Dosage: UNK
     Route: 065

REACTIONS (44)
  - Hair growth abnormal [Unknown]
  - Decreased appetite [Unknown]
  - Nausea [Recovered/Resolved]
  - Musculoskeletal chest pain [Recovering/Resolving]
  - Melanoderma [Unknown]
  - Mass [Unknown]
  - Skin disorder [Unknown]
  - Temperature intolerance [Unknown]
  - Parosmia [Unknown]
  - Asthenia [Unknown]
  - Pruritus [Not Recovered/Not Resolved]
  - Muscle spasms [Unknown]
  - Nocturia [Unknown]
  - Pancreatic enzymes increased [Unknown]
  - Diarrhoea haemorrhagic [Not Recovered/Not Resolved]
  - Sneezing [Recovering/Resolving]
  - Rhinorrhoea [Recovering/Resolving]
  - Malaise [Unknown]
  - Dry skin [Unknown]
  - Gait inability [Unknown]
  - Headache [Unknown]
  - Monoplegia [Unknown]
  - Lacrimation increased [Recovering/Resolving]
  - Nasopharyngitis [Unknown]
  - Stress [Unknown]
  - Weight decreased [Recovering/Resolving]
  - Bowel movement irregularity [Unknown]
  - Anal incontinence [Unknown]
  - Liver disorder [Unknown]
  - Dysstasia [Unknown]
  - Alopecia [Unknown]
  - Dizziness [Unknown]
  - Abdominal pain upper [Unknown]
  - Nausea [Recovering/Resolving]
  - Rash pruritic [Unknown]
  - Hepatic enzyme increased [Unknown]
  - Lower respiratory tract infection [Recovering/Resolving]
  - Insomnia [Unknown]
  - Diarrhoea [Recovering/Resolving]
  - Cough [Unknown]
  - Pain of skin [Recovering/Resolving]
  - Hypertension [Recovering/Resolving]
  - Fatigue [Unknown]
  - Blood pressure systolic increased [Recovered/Resolved]

NARRATIVE: CASE EVENT DATE: 20150116
